FAERS Safety Report 9995465 (Version 1)
Quarter: 2014Q1

REPORT INFORMATION
  Report Type: Spontaneous
  Country: RO (occurrence: None)
  Receive Date: 20140307
  Receipt Date: 20140307
  Transmission Date: 20141002
  Serious: Yes (Hospitalization)
  Sender: FDA-Public Use
  Company Number: KAD201403-000289

PATIENT
  Age: 47 Year
  Sex: Female

DRUGS (2)
  1. RIBAVIRIN (RIBAVIRIN) [Suspect]
     Indication: CHRONIC HEPATITIS C
  2. PEGYLATED INTERFERON ALFA-2A (PEGYLATED INTERFERON ALFA-2A) [Suspect]
     Indication: CHRONIC HEPATITIS C

REACTIONS (14)
  - Cardiomyopathy [None]
  - Hyperthyroidism [None]
  - Thyroiditis [None]
  - Hypothyroidism [None]
  - Anaemia [None]
  - Leukopenia [None]
  - Hypocholesterolaemia [None]
  - Chest pain [None]
  - Palpitations [None]
  - Hyperhidrosis [None]
  - Emotional disorder [None]
  - Stress [None]
  - Aspartate aminotransferase increased [None]
  - Alanine aminotransferase increased [None]
